FAERS Safety Report 6025636-6 (Version None)
Quarter: 2008Q4

REPORT INFORMATION
  Report Type: 
  Country: None (occurrence: None)
  Receive Date: 20081231
  Receipt Date: 20081225
  Transmission Date: 20090506
  Serious: Yes (Death, Hospitalization)
  Sender: FDA-Public Use
  Company Number: US-BRISTOL-MYERS SQUIBB COMPANY-14454979

PATIENT
  Age: 66 Year
  Sex: Female
  Weight: 76 kg

DRUGS (1)
  1. SPRYCEL [Suspect]
     Indication: SMALL CELL LUNG CANCER STAGE UNSPECIFIED
     Dosage: 70 MG BID START DATE 14-NOV-2008 CYCLE 21 DAYS, LAST ADMINISTERED ON 25NOV08.
     Route: 048
     Dates: start: 20081114

REACTIONS (5)
  - CHRONIC OBSTRUCTIVE PULMONARY DISEASE [None]
  - DEHYDRATION [None]
  - DYSPNOEA [None]
  - MALIGNANT NEOPLASM PROGRESSION [None]
  - SINUS TACHYCARDIA [None]
